FAERS Safety Report 6946753-X (Version None)
Quarter: 2010Q3

REPORT INFORMATION
  Report Type: 
  Country: None (occurrence: None)
  Receive Date: 20100827
  Receipt Date: 20090811
  Transmission Date: 20110219
  Serious: No
  Sender: FDA-Public Use
  Company Number: US-ABBOTT-09P-163-0591331-00

PATIENT
  Sex: Male
  Weight: 78.996 kg

DRUGS (5)
  1. NIASPAN [Suspect]
     Indication: LIPOPROTEIN (A) INCREASED
     Dosage: 500 MG IN MORNING AND 500 MG IN EVENING
     Dates: start: 20090801
  2. MELOXICAM [Concomitant]
     Indication: PRODUCT USED FOR UNKNOWN INDICATION
     Dosage: IN THE MORNING
     Route: 048
  3. TESTOSTERONE [Concomitant]
     Indication: BLOOD CALCIUM INCREASED
     Dosage: DAILY
     Route: 061
  4. ANASTROZOLE [Concomitant]
     Indication: PROPHYLAXIS
     Dosage: DAILY
  5. CREAMS BIOIDENTIEAL HORMONES [Concomitant]
     Indication: PRODUCT USED FOR UNKNOWN INDICATION
     Dosage: DAILY

REACTIONS (5)
  - BURNING SENSATION [None]
  - CHILLS [None]
  - ERYTHEMA [None]
  - FLUSHING [None]
  - PARAESTHESIA [None]
